FAERS Safety Report 5647110-9 (Version None)
Quarter: 2008Q1

REPORT INFORMATION
  Report Type: 
  Country: None (occurrence: None)
  Receive Date: 20080228
  Receipt Date: 20080228
  Transmission Date: 20080703
  Serious: Yes (Other)
  Sender: FDA-Public Use
  Company Number: None

PATIENT
  Age: 79 Year
  Sex: Male
  Weight: 63 kg

DRUGS (2)
  1. TYGACIL [Suspect]
     Indication: SEPSIS
     Dosage: 100 MG  X1   IV
     Route: 042
     Dates: start: 20080216, end: 20080216
  2. TYGACIL [Suspect]
     Indication: SEPSIS
     Dosage: 50 MG EVERY 12 HOURS IV
     Route: 042
     Dates: start: 20080217, end: 20080222

REACTIONS (1)
  - THROMBOCYTOPENIA [None]
